FAERS Safety Report 24843405 (Version 1)
Quarter: 2025Q1

REPORT INFORMATION
  Report Type: Report from Study
  Country: IN (occurrence: IN)
  Receive Date: 20250115
  Receipt Date: 20250115
  Transmission Date: 20250409
  Serious: Yes (Other)
  Sender: JOHNSON AND JOHNSON
  Company Number: IN-JNJFOC-20250114317

PATIENT

DRUGS (14)
  1. BEDAQUILINE [Suspect]
     Active Substance: BEDAQUILINE
     Indication: Tuberculosis
     Route: 048
  2. BEDAQUILINE [Suspect]
     Active Substance: BEDAQUILINE
     Route: 048
  3. BEDAQUILINE [Suspect]
     Active Substance: BEDAQUILINE
     Route: 048
  4. BEDAQUILINE [Suspect]
     Active Substance: BEDAQUILINE
     Route: 048
  5. BEDAQUILINE [Suspect]
     Active Substance: BEDAQUILINE
     Route: 048
  6. PRETOMANID [Suspect]
     Active Substance: PRETOMANID
     Indication: Tuberculosis
  7. PRETOMANID [Suspect]
     Active Substance: PRETOMANID
  8. PRETOMANID [Suspect]
     Active Substance: PRETOMANID
  9. PRETOMANID [Suspect]
     Active Substance: PRETOMANID
  10. LINEZOLID [Suspect]
     Active Substance: LINEZOLID
     Indication: Tuberculosis
  11. LINEZOLID [Suspect]
     Active Substance: LINEZOLID
  12. LINEZOLID [Suspect]
     Active Substance: LINEZOLID
  13. LINEZOLID [Suspect]
     Active Substance: LINEZOLID
  14. LINEZOLID [Suspect]
     Active Substance: LINEZOLID

REACTIONS (12)
  - Thrombocytopenia [Unknown]
  - Electrocardiogram QT prolonged [Unknown]
  - Hyperbilirubinaemia [Unknown]
  - Hypokalaemia [Unknown]
  - Hyperkalaemia [Unknown]
  - Treatment failure [Unknown]
  - Hepatic enzyme increased [Unknown]
  - Lipase increased [Unknown]
  - Amylase increased [Unknown]
  - Hypocalcaemia [Unknown]
  - Hypercalcaemia [Unknown]
  - Gastrointestinal disorder [Unknown]
